FAERS Safety Report 25921792 (Version 1)
Quarter: 2025Q4

REPORT INFORMATION
  Report Type: Report from Study
  Country: CO (occurrence: CO)
  Receive Date: 20251014
  Receipt Date: 20251014
  Transmission Date: 20260118
  Serious: Yes (Hospitalization)
  Sender: ABBVIE
  Company Number: CO-ABBVIE-6495747

PATIENT
  Sex: Male
  Weight: 80 kg

DRUGS (1)
  1. SKYRIZI [Suspect]
     Active Substance: RISANKIZUMAB-RZAA
     Indication: Psoriasis
     Dosage: FORM STRENGTH 150 MG
     Route: 058
     Dates: start: 20230824

REACTIONS (6)
  - Intervertebral disc protrusion [Recovering/Resolving]
  - Hypoaesthesia [Recovering/Resolving]
  - Wound [Recovering/Resolving]
  - Sciatica [Recovering/Resolving]
  - Musculoskeletal pain [Recovering/Resolving]
  - Postoperative wound infection [Recovering/Resolving]

NARRATIVE: CASE EVENT DATE: 20240101
